FAERS Safety Report 18086061 (Version 3)
Quarter: 2021Q1

REPORT INFORMATION
  Report Type: Report from Study
  Country: TR (occurrence: TR)
  Receive Date: 20200729
  Receipt Date: 20210224
  Transmission Date: 20210419
  Serious: Yes (Death)
  Sender: FDA-Public Use
  Company Number: TR-PFIZER INC-2020286786

PATIENT
  Age: 8 Year
  Sex: Male

DRUGS (20)
  1. TRIMETHOPRIM SULFAMETHOXAZOLE [Suspect]
     Active Substance: SULFAMETHOXAZOLE\TRIMETHOPRIM
     Indication: PROPHYLAXIS
     Dosage: UNK
  2. TRANEXAMIC ACID. [Concomitant]
     Active Substance: TRANEXAMIC ACID
     Dosage: UNK
  3. FACTOR XIII [Concomitant]
     Active Substance: FACTOR XIII CONCENTRATE (HUMAN)
     Dosage: 500 IUM IN THE FOLLOWING 5 DAYS
  4. VANCOMYCIN HCL [Suspect]
     Active Substance: VANCOMYCIN HYDROCHLORIDE
     Indication: SEPSIS
     Dosage: UNK
  5. HUMAN IMMUNOGLOBULIN (IMMUNOGLOBULIN HUMAN NORMAL) [Suspect]
     Active Substance: HUMAN IMMUNOGLOBULIN G
     Indication: PROPHYLAXIS
     Dosage: (2 G/KG))
     Route: 042
  6. SIROLIMUS. [Concomitant]
     Active Substance: SIROLIMUS
     Dosage: 0.8 MG/M2, 2X/DAY
  7. FACTOR XIII [Concomitant]
     Active Substance: FACTOR XIII CONCENTRATE (HUMAN)
     Dosage: 1250 IU
  8. FACTOR XIII [Concomitant]
     Active Substance: FACTOR XIII CONCENTRATE (HUMAN)
     Dosage: 1250 IU, HIGH?DOSE FXIII CONCENTRATE
  9. FACTOR XIII [Concomitant]
     Active Substance: FACTOR XIII CONCENTRATE (HUMAN)
     Indication: SURGERY
     Dosage: 500U (20 U/KG)
  10. FACTOR XIII [Concomitant]
     Active Substance: FACTOR XIII CONCENTRATE (HUMAN)
     Dosage: 1250 IU, FOR THE FIRST DAY
  11. FACTOR XIII [Concomitant]
     Active Substance: FACTOR XIII CONCENTRATE (HUMAN)
     Dosage: 1250 IU, INFUSION OF HIGH?DOSE
  12. FACTOR XIII [Concomitant]
     Active Substance: FACTOR XIII CONCENTRATE (HUMAN)
     Dosage: 1250 IU, ONCE A WEEK FOR 2 WEEKS
  13. TRANEXAMIC ACID. [Concomitant]
     Active Substance: TRANEXAMIC ACID
     Dosage: 10 MG/KG, 3X/DAY
  14. RITUXIMAB. [Concomitant]
     Active Substance: RITUXIMAB
     Indication: HAEMORRHAGE
     Dosage: 375 MG/M2, WEEKLY
  15. FACTOR XIII [Concomitant]
     Active Substance: FACTOR XIII CONCENTRATE (HUMAN)
     Dosage: 500 IU INFUSION
  16. PIPERACILLIN/TAZOBACTAM [Suspect]
     Active Substance: PIPERACILLIN SODIUM\TAZOBACTAM SODIUM
     Indication: PNEUMONIA
     Dosage: UNK
  17. HUMAN IMMUNOGLOBULIN (IMMUNOGLOBULIN HUMAN NORMAL) [Suspect]
     Active Substance: HUMAN IMMUNOGLOBULIN G
     Indication: IMMUNOSUPPRESSION
  18. MEROPENEM. [Suspect]
     Active Substance: MEROPENEM
     Indication: SEPSIS
     Dosage: UNK
  19. TEICOPLANINE [Suspect]
     Active Substance: TEICOPLANIN
     Indication: PNEUMONIA
     Dosage: UNK
  20. PREDNISONE. [Concomitant]
     Active Substance: PREDNISONE
     Dosage: 2 MG/KG, DAILY

REACTIONS (3)
  - Drug ineffective [Fatal]
  - Septic shock [Fatal]
  - Acute respiratory distress syndrome [Fatal]
